FAERS Safety Report 7170818-3 (Version None)
Quarter: 2010Q4

REPORT INFORMATION
  Report Type: 
  Country: None (occurrence: None)
  Receive Date: 20101214
  Receipt Date: 20101214
  Transmission Date: 20110411
  Serious: No
  Sender: FDA-Public Use
  Company Number: None

PATIENT
  Sex: Female

DRUGS (1)
  1. LAMICTAL [Suspect]
     Indication: FRONTAL LOBE EPILEPSY
     Dosage: 150MG BID PO HAS BEEN ON LAMICTAL PRIOR TO 2008
     Route: 048

REACTIONS (1)
  - CONVULSION [None]
